FAERS Safety Report 18673533 (Version 4)
Quarter: 2021Q2

REPORT INFORMATION
  Report Type: Spontaneous
  Country: US (occurrence: US)
  Receive Date: 20201228
  Receipt Date: 20210401
  Transmission Date: 20210717
  Serious: No
  Sender: FDA-Public Use
  Company Number: US-PFIZER INC-2020511392

PATIENT
  Age: 37 Year
  Sex: Female

DRUGS (2)
  1. XELJANZ XR [Suspect]
     Active Substance: TOFACITINIB CITRATE
     Indication: RHEUMATOID ARTHRITIS
     Dosage: 11 MG, 1X/DAY
     Route: 048
     Dates: start: 202011
  2. ACTIVIA [Concomitant]
     Indication: CONSTIPATION
     Dosage: UNK

REACTIONS (7)
  - Product dose omission in error [Unknown]
  - Urine output decreased [Unknown]
  - Arthralgia [Recovering/Resolving]
  - Vision blurred [Recovered/Resolved]
  - Abdominal pain upper [Unknown]
  - Dry throat [Unknown]
  - Constipation [Unknown]
